FAERS Safety Report 8965071 (Version 1)
Quarter: 2012Q4

REPORT INFORMATION
  Report Type: 
  Country: US (occurrence: US)
  Receive Date: 20121213
  Receipt Date: 20121213
  Transmission Date: 20130627
  Serious: No
  Sender: FDA-Public Use
  Company Number: US-BRISTOL-MYERS SQUIBB COMPANY-16444234

PATIENT
  Sex: Male

DRUGS (2)
  1. PRAVACHOL [Suspect]
  2. PRAVASTATIN SODIUM [Suspect]

REACTIONS (1)
  - Muscle spasms [Unknown]
